FAERS Safety Report 9562026 (Version 1)
Quarter: 2013Q3

REPORT INFORMATION
  Report Type: Spontaneous
  Country: AU (occurrence: AU)
  Receive Date: 20130927
  Receipt Date: 20130927
  Transmission Date: 20140515
  Serious: Yes (Hospitalization, Other)
  Sender: FDA-Public Use
  Company Number: AU-PFIZER INC-2013275555

PATIENT
  Age: 47 Year
  Sex: Female

DRUGS (2)
  1. PREGABALIN [Suspect]
     Indication: SCIATICA
     Dosage: 75 MG, UNK
  2. MICARDIS PLUS [Concomitant]
     Dosage: UNK

REACTIONS (8)
  - Renal failure acute [Recovered/Resolved]
  - Hypertension [Recovered/Resolved]
  - Toxicity to various agents [Recovered/Resolved]
  - Myoclonus [Recovered/Resolved]
  - Muscular weakness [Recovered/Resolved]
  - Hyponatraemia [Recovered/Resolved]
  - Blood pressure decreased [Recovered/Resolved]
  - Gait disturbance [Unknown]
